FAERS Safety Report 18959887 (Version 1)
Quarter: 2021Q1

REPORT INFORMATION
  Report Type: Spontaneous
  Country: ZA (occurrence: ZA)
  Receive Date: 20210303
  Receipt Date: 20210303
  Transmission Date: 20210420
  Serious: Yes (Hospitalization, Other)
  Sender: FDA-Public Use
  Company Number: ZA-LUPIN PHARMACEUTICALS INC.-2021-02480

PATIENT
  Age: 33 Year
  Sex: Female

DRUGS (2)
  1. DICLOFENAC [Suspect]
     Active Substance: DICLOFENAC
     Indication: MYALGIA
     Dosage: UNK
     Route: 030
  2. MYPAID FORTE [Suspect]
     Active Substance: ACETAMINOPHEN\IBUPROFEN
     Indication: MYALGIA
     Dosage: UNK
     Route: 065

REACTIONS (3)
  - Rhabdomyolysis [Recovered/Resolved]
  - Glomerular filtration rate decreased [Recovered/Resolved]
  - Condition aggravated [Recovered/Resolved]
